FAERS Safety Report 6416959-7 (Version None)
Quarter: 2009Q4

REPORT INFORMATION
  Report Type: 
  Country: None (occurrence: None)
  Receive Date: 20091023
  Receipt Date: 20090926
  Transmission Date: 20100525
  Serious: Yes (Other)
  Sender: FDA-Public Use
  Company Number: 8053446

PATIENT
  Age: 60 Year
  Sex: Female

DRUGS (8)
  1. KEPPRA [Suspect]
     Indication: EPILEPSY
     Dosage: 2000 MG /D PO
     Route: 048
  2. KEPPRA [Suspect]
     Indication: OLIGODENDROGLIOMA
     Dosage: 2000 MG /D PO
     Route: 048
  3. VIMPAT [Suspect]
     Indication: EPILEPSY
     Dosage: 250 MG /D PO
     Route: 048
  4. VIMPAT [Suspect]
     Indication: OLIGODENDROGLIOMA
     Dosage: 250 MG /D PO
     Route: 048
  5. VIMPAT [Suspect]
     Indication: EPILEPSY
     Dosage: 250 MG /D IV
     Route: 042
  6. VIMPAT [Suspect]
     Indication: OLIGODENDROGLIOMA
     Dosage: 250 MG /D IV
     Route: 042
  7. VIMPAT [Suspect]
     Indication: EPILEPSY
     Dosage: 250 MG /D PO
     Route: 048
  8. VIMPAT [Suspect]
     Indication: OLIGODENDROGLIOMA
     Dosage: 250 MG /D PO
     Route: 048

REACTIONS (3)
  - DYSPHAGIA [None]
  - PYREXIA [None]
  - STATUS EPILEPTICUS [None]
